FAERS Safety Report 13380867 (Version 1)
Quarter: 2017Q1

REPORT INFORMATION
  Report Type: Spontaneous
  Country: US (occurrence: US)
  Receive Date: 20170328
  Receipt Date: 20170328
  Transmission Date: 20170429
  Serious: Yes (Hospitalization)
  Sender: FDA-Public Use
  Company Number: None

PATIENT
  Age: 54 Year
  Sex: Female
  Weight: 58.5 kg

DRUGS (1)
  1. XYZAL [Suspect]
     Active Substance: LEVOCETIRIZINE DIHYDROCHLORIDE
     Indication: MULTIPLE ALLERGIES
     Dosage: ?          QUANTITY:35 TABLET(S);?
     Route: 048
     Dates: start: 20170319, end: 20170327

REACTIONS (6)
  - Vocal cord disorder [None]
  - Anxiety [None]
  - Asthma [None]
  - Dyspnoea [None]
  - Throat tightness [None]
  - Chest pain [None]

NARRATIVE: CASE EVENT DATE: 20170327
